FAERS Safety Report 15265046 (Version 1)
Quarter: 2018Q3

REPORT INFORMATION
  Report Type: Spontaneous
  Country: AU (occurrence: AU)
  Receive Date: 20180810
  Receipt Date: 20180810
  Transmission Date: 20181010
  Serious: Yes (Disabling)
  Sender: FDA-Public Use
  Company Number: AU-009507513-1808AUS002828

PATIENT
  Age: 32 Year
  Sex: Male
  Weight: 58 kg

DRUGS (2)
  1. ADVANTAN [Suspect]
     Active Substance: METHYLPREDNISOLONE ACEPONATE
     Indication: ECZEMA
     Dosage: UNK UNK, QD
     Route: 061
     Dates: start: 20040101, end: 20160120
  2. NOVASONE [Suspect]
     Active Substance: MOMETASONE FUROATE
     Indication: ECZEMA
     Dosage: UNK UNK, QD
     Route: 061
     Dates: start: 20080101, end: 20160101

REACTIONS (2)
  - Drug dependence [Recovering/Resolving]
  - Steroid withdrawal syndrome [Recovering/Resolving]

NARRATIVE: CASE EVENT DATE: 20151101
